FAERS Safety Report 16015791 (Version 1)
Quarter: 2019Q1

REPORT INFORMATION
  Report Type: Spontaneous
  Country: JP (occurrence: JP)
  Receive Date: 20190228
  Receipt Date: 20190228
  Transmission Date: 20190418
  Serious: Yes (Hospitalization, Other)
  Sender: FDA-Public Use
  Company Number: JP-GLAXOSMITHKLINE-JP2019JPN034344

PATIENT
  Age: 41 Year
  Sex: Male

DRUGS (7)
  1. LOXOFEN (LOXOPROFEN SODIUM) [Interacting]
     Active Substance: LOXOPROFEN SODIUM
     Indication: OROPHARYNGEAL PAIN
  2. LOXOFEN (LOXOPROFEN SODIUM) [Interacting]
     Active Substance: LOXOPROFEN SODIUM
     Indication: HEADACHE
  3. ACETAMINOPHEN. [Interacting]
     Active Substance: ACETAMINOPHEN
     Indication: PYREXIA
     Dosage: UNK
     Route: 048
  4. ACETAMINOPHEN. [Interacting]
     Active Substance: ACETAMINOPHEN
     Indication: HEADACHE
     Dosage: UNK, PRN
     Route: 048
  5. LOXOFEN (LOXOPROFEN SODIUM) [Interacting]
     Active Substance: LOXOPROFEN SODIUM
     Indication: PYREXIA
     Dosage: UNK
     Route: 048
  6. ACETAMINOPHEN. [Interacting]
     Active Substance: ACETAMINOPHEN
     Indication: OROPHARYNGEAL PAIN
  7. LAMICTAL [Suspect]
     Active Substance: LAMOTRIGINE
     Indication: EPILEPSY
     Dosage: UNK
     Route: 048

REACTIONS (9)
  - Drug interaction [Unknown]
  - Malaise [Unknown]
  - Headache [Unknown]
  - Erythema multiforme [Recovering/Resolving]
  - Drug eruption [None]
  - Pyrexia [Unknown]
  - Alanine aminotransferase increased [None]
  - Oropharyngeal pain [Unknown]
  - Aspartate aminotransferase increased [None]
